FAERS Safety Report 4700272-X (Version None)
Quarter: 2005Q2

REPORT INFORMATION
  Report Type: 
  Country: None (occurrence: None)
  Receive Date: 20050627
  Receipt Date: 20050615
  Transmission Date: 20051028
  Serious: Yes (Hospitalization, Other)
  Sender: FDA-Public Use
  Company Number: PHEH2005US06795

PATIENT
  Age: 8 Year
  Sex: Male

DRUGS (9)
  1. RITALIN [Suspect]
     Dosage: 10 MG, QD
     Dates: start: 20041223, end: 20050101
  2. RITALIN [Suspect]
     Dosage: 20 MG, QD
  3. RITALIN LA [Suspect]
     Dosage: 40 MG, QD
     Dates: start: 20050101, end: 20050401
  4. ABILIFY [Concomitant]
  5. RISPERDAL [Concomitant]
  6. CONCERTA [Concomitant]
  7. ADDERALL [Concomitant]
  8. HYDROXYZINE [Concomitant]
  9. DEPAKENE [Concomitant]
     Indication: CONVULSION

REACTIONS (3)
  - SYNCOPE [None]
  - VOMITING [None]
  - WEIGHT DECREASED [None]
